FAERS Safety Report 13642803 (Version 1)
Quarter: 2017Q2

REPORT INFORMATION
  Report Type: Spontaneous
  Country: US (occurrence: US)
  Receive Date: 20170612
  Receipt Date: 20170612
  Transmission Date: 20170830
  Serious: No
  Sender: FDA-Public Use
  Company Number: US-HORIZON-PEN-0267-2017

PATIENT
  Sex: Female

DRUGS (1)
  1. PENNSAID [Suspect]
     Active Substance: DICLOFENAC SODIUM
     Indication: TENDONITIS
     Dosage: USED AS NEEDED AND LESS THAN PRESCRIBED (2PUMPS, BID)
     Dates: start: 20170502

REACTIONS (4)
  - Bacterial infection [Unknown]
  - Off label use [Unknown]
  - Intentional product misuse [Unknown]
  - Acne [Not Recovered/Not Resolved]

NARRATIVE: CASE EVENT DATE: 20170526
